FAERS Safety Report 4590653-X (Version None)
Quarter: 2005Q1

REPORT INFORMATION
  Report Type: 
  Country: None (occurrence: None)
  Receive Date: 20050218
  Receipt Date: 20050218
  Transmission Date: 20050727
  Serious: Yes (Hospitalization)
  Sender: FDA-Public Use
  Company Number: None

PATIENT
  Sex: Female

DRUGS (6)
  1. GEMCITABINE [Suspect]
     Indication: PANCREATIC CARCINOMA METASTATIC
     Dosage: 600  MG/M2  INTRAVENOUS
     Route: 042
     Dates: start: 20040511, end: 20050118
  2. IRINOTECAN HCL [Suspect]
     Indication: PANCREATIC CARCINOMA METASTATIC
     Dosage: 50 MG/M2  INTRAVENOUS
     Route: 042
     Dates: start: 20040511, end: 20050125
  3. FLAGYL [Concomitant]
  4. LOMOTIL [Concomitant]
  5. ZOFRAN [Concomitant]
  6. PERCOCET [Concomitant]

REACTIONS (4)
  - CLOSTRIDIUM COLITIS [None]
  - DEHYDRATION [None]
  - DIARRHOEA [None]
  - VOMITING [None]
